FAERS Safety Report 7629382-4 (Version None)
Quarter: 2011Q3

REPORT INFORMATION
  Report Type: 
  Country: None (occurrence: None)
  Receive Date: 20110722
  Receipt Date: 20110711
  Transmission Date: 20111222
  Serious: Yes (Other)
  Sender: FDA-Public Use
  Company Number: US-CEPHALON-2011003659

PATIENT
  Sex: Female
  Weight: 95 kg

DRUGS (9)
  1. SYNTHROID [Concomitant]
  2. OXYCODONE HCL [Concomitant]
  3. EFFEXOR XR [Concomitant]
  4. PREDNISONE [Concomitant]
  5. ZETIA [Concomitant]
  6. TOPRAL XL [Concomitant]
  7. PROCARDIA [Concomitant]
  8. TRICOR [Concomitant]
  9. NUVIGIL [Suspect]
     Indication: FATIGUE
     Route: 048
     Dates: start: 20100111

REACTIONS (1)
  - VISUAL IMPAIRMENT [None]
